FAERS Safety Report 7088828-3 (Version None)
Quarter: 2010Q4

REPORT INFORMATION
  Report Type: 
  Country: None (occurrence: None)
  Receive Date: 20101108
  Receipt Date: 20101028
  Transmission Date: 20110411
  Serious: Yes (Hospitalization)
  Sender: FDA-Public Use
  Company Number: PHHO2010RU15501

PATIENT
  Sex: Male
  Weight: 74 kg

DRUGS (10)
  1. BLINDED ALISKIREN ALI+TAB+CF [Suspect]
     Indication: CARDIAC FAILURE
     Dosage: CODE NOT BROKEN
     Route: 048
     Dates: start: 20100623
  2. ENALAPRIL MALEATE [Suspect]
     Indication: CARDIAC FAILURE
     Dosage: CODE NOT BROKEN
     Route: 048
     Dates: start: 20100623
  3. BLINDED NO TREATMENT RECEIVED NOMED [Suspect]
     Indication: CARDIAC FAILURE
     Dosage: CODE NOT BROKEN
     Route: 048
     Dates: start: 20100623
  4. COMPARATOR ENALAPRIL [Suspect]
     Indication: CARDIAC FAILURE
     Dosage: UNK
     Route: 048
     Dates: start: 20100519, end: 20100608
  5. ALISKIREN [Suspect]
     Indication: CARDIAC FAILURE
     Dosage: UNK
     Route: 048
     Dates: start: 20100609, end: 20100622
  6. DIUVER [Concomitant]
     Indication: CARDIAC FAILURE CHRONIC
  7. ATORVASTATIN [Concomitant]
     Indication: CORONARY ARTERY DISEASE
  8. ASPIRIN [Concomitant]
     Indication: CORONARY ARTERY DISEASE
  9. CORDARONE [Concomitant]
     Indication: EXTRASYSTOLES
  10. OMACOR [Concomitant]
     Indication: MYOCARDIAL INFARCTION

REACTIONS (6)
  - CARDIAC FAILURE [None]
  - DYSPNOEA [None]
  - OEDEMA [None]
  - RENAL ARTERY STENOSIS [None]
  - RENAL IMPAIRMENT [None]
  - RENAL ISCHAEMIA [None]
